FAERS Safety Report 12635957 (Version 2)
Quarter: 2016Q3

REPORT INFORMATION
  Report Type: Spontaneous
  Country: US (occurrence: US)
  Receive Date: 20160809
  Receipt Date: 20160823
  Transmission Date: 20161109
  Serious: No
  Sender: FDA-Public Use
  Company Number: US-PFIZER INC-2016238987

PATIENT
  Age: 63 Year
  Sex: Female
  Weight: 122 kg

DRUGS (23)
  1. COUMADINE [Concomitant]
     Active Substance: WARFARIN SODIUM
     Indication: BLOOD DISORDER
     Dosage: 5 MG, UNK (AS DIRECTED)
     Route: 048
  2. SUTENT [Suspect]
     Active Substance: SUNITINIB MALATE
     Indication: RENAL CANCER STAGE IV
     Dosage: 37.5 MG, DAILY (Q.DAY)
     Route: 048
     Dates: start: 20160501
  3. AMLODIPINE [Concomitant]
     Active Substance: AMLODIPINE BESYLATE
     Dosage: 10 MG, 2X/DAY
     Route: 048
  4. NOVOLIN N [Concomitant]
     Active Substance: INSULIN HUMAN
     Indication: TYPE 2 DIABETES MELLITUS
     Dosage: 100 IU/ML, UNK (LOW SLIDING SCALE)
     Route: 058
  5. NORVASC [Concomitant]
     Active Substance: AMLODIPINE BESYLATE
     Indication: HYPERTENSION
     Dosage: 10 MG, 2X/DAY
     Route: 048
  6. TYLENOL [Concomitant]
     Active Substance: ACETAMINOPHEN
     Indication: ARTHRITIS
     Dosage: 325 MG, 2X/DAY
     Route: 048
     Dates: start: 2016
  7. ACETAMINOPHEN. [Concomitant]
     Active Substance: ACETAMINOPHEN
     Dosage: 500 MG, 2X/DAY
     Route: 048
  8. ATORVASTATIN [Concomitant]
     Active Substance: ATORVASTATIN
     Indication: BLOOD CHOLESTEROL INCREASED
     Dosage: 10 MG, 2X/DAY
     Route: 048
  9. CENTRUM SILVER +50 [Concomitant]
     Dosage: UNK, DAILY
     Route: 048
  10. NOVOLIN N [Concomitant]
     Active Substance: INSULIN HUMAN
     Dosage: 3 IU, DAILY
     Route: 058
  11. DOCUSATE SODIUM. [Concomitant]
     Active Substance: DOCUSATE SODIUM
     Dosage: 100 MG, 2X/DAY
     Route: 048
  12. LABETALOL [Concomitant]
     Active Substance: LABETALOL\LABETALOL HYDROCHLORIDE
     Indication: HYPERTENSION
     Dosage: 100 MG, 3X/DAY
     Route: 048
     Dates: start: 201601
  13. TRAMADOL. [Concomitant]
     Active Substance: TRAMADOL
     Indication: PAIN
     Dosage: 50 MG, AS NEEDED (THREE TIMES A DAY)
     Route: 048
  14. CLARITIN [Concomitant]
     Active Substance: LORATADINE
     Dosage: 10 MG, DAILY
     Route: 048
     Dates: start: 201601
  15. ATORVASTATIN [Concomitant]
     Active Substance: ATORVASTATIN
     Dosage: 10 MG, DAILY (Q.DAY)
     Route: 048
     Dates: start: 201601
  16. GLIMEPIRIDE. [Concomitant]
     Active Substance: GLIMEPIRIDE
     Dosage: 4 MG, 2X/DAY
     Route: 048
  17. LORATADINE. [Concomitant]
     Active Substance: LORATADINE
     Dosage: 10 MG, 2X/DAY (Q.DAY)
     Route: 048
  18. MULTIVITAMIN [Concomitant]
     Active Substance: VITAMINS
     Dosage: UNK
     Route: 048
  19. AMARYL [Concomitant]
     Active Substance: GLIMEPIRIDE
     Indication: TYPE 2 DIABETES MELLITUS
     Dosage: 4 MG, DAILY
     Route: 048
  20. COLACE [Concomitant]
     Active Substance: DOCUSATE SODIUM
     Indication: DIARRHOEA
     Dosage: 100 MG, 2X/DAY
     Route: 048
     Dates: start: 20160227
  21. MIRALAX [Concomitant]
     Active Substance: POLYETHYLENE GLYCOL 3350
     Indication: ABDOMINAL DISCOMFORT
     Dosage: 17 G, UNK (ONE PACKET DISSOLVED IN A LIQUID)
     Dates: start: 201601
  22. CLONIDINE. [Concomitant]
     Active Substance: CLONIDINE
     Indication: HYPERTENSION
     Dosage: 0.3 MG, 3X/DAY
     Route: 048
  23. WARFARIN [Concomitant]
     Active Substance: WARFARIN
     Dosage: 10 MG, UNK

REACTIONS (6)
  - Poor quality drug administered [Not Recovered/Not Resolved]
  - Product packaging issue [Not Recovered/Not Resolved]
  - Hypogeusia [Not Recovered/Not Resolved]
  - Dysgeusia [Not Recovered/Not Resolved]
  - Memory impairment [Recovering/Resolving]
  - Alopecia [Not Recovered/Not Resolved]

NARRATIVE: CASE EVENT DATE: 201605
